FAERS Safety Report 13970299 (Version 1)
Quarter: 2017Q3

REPORT INFORMATION
  Report Type: Spontaneous
  Country: US (occurrence: US)
  Receive Date: 20170914
  Receipt Date: 20170914
  Transmission Date: 20171128
  Serious: No
  Sender: FDA-Public Use
  Company Number: US-ASTELLAS-2017US014204

PATIENT
  Age: 77 Year
  Sex: Male

DRUGS (1)
  1. XTANDI [Suspect]
     Active Substance: ENZALUTAMIDE
     Indication: PROSTATE CANCER
     Route: 048
     Dates: start: 20160411

REACTIONS (5)
  - Toothache [Unknown]
  - Sensitivity of teeth [Unknown]
  - Eye pain [Unknown]
  - Ear pain [Unknown]
  - Infection [Unknown]

NARRATIVE: CASE EVENT DATE: 20170406
